FAERS Safety Report 4510088-5 (Version None)
Quarter: 2004Q4

REPORT INFORMATION
  Report Type: 
  Country: None (occurrence: None)
  Receive Date: 20041119
  Receipt Date: 20041104
  Transmission Date: 20050328
  Serious: Yes (Hospitalization)
  Sender: FDA-Public Use
  Company Number: DE-ROCHE-321170

PATIENT
  Age: 61 Year
  Sex: Male
  Weight: 80 kg

DRUGS (9)
  1. TOLCAPONE (TOLCAPONE) [Suspect]
     Indication: PARKINSON'S DISEASE
     Dosage: 100 MG; 3 TIMES A DAY; ORAL
     Route: 048
     Dates: start: 20011219, end: 20020906
  2. TOLCAPONE (TOLCAPONE) [Suspect]
     Indication: PARKINSON'S DISEASE
     Dosage: 100 MG; 3 TIMES A DAY; ORAL
     Route: 048
     Dates: start: 20020911
  3. L-DOPA [Concomitant]
  4. SIFROL [Concomitant]
  5. CABESERIL [Concomitant]
  6. ZOLADEX [Concomitant]
  7. ANDROCUR [Concomitant]
  8. AMANTADINE HCL [Concomitant]
  9. MACROGOL [Concomitant]

REACTIONS (5)
  - ASPARTATE AMINOTRANSFERASE DECREASED [None]
  - ASPARTATE AMINOTRANSFERASE INCREASED [None]
  - CONDITION AGGRAVATED [None]
  - ERYSIPELAS [None]
  - PARKINSON'S DISEASE [None]
